FAERS Safety Report 6784290-6 (Version None)
Quarter: 2010Q2

REPORT INFORMATION
  Report Type: 
  Country: None (occurrence: None)
  Receive Date: 20100622
  Receipt Date: 20100609
  Transmission Date: 20101027
  Serious: Yes (Hospitalization, Other)
  Sender: FDA-Public Use
  Company Number: GB-ELI_LILLY_AND_COMPANY-GB201005002142

PATIENT
  Age: 39 Year
  Sex: Female

DRUGS (11)
  1. FLUOXETINE [Suspect]
     Indication: DEPRESSION
     Dosage: 60 MG, DAILY (1/D)
     Route: 048
     Dates: end: 20100416
  2. CETIRIZINE HCL [Concomitant]
  3. FUROSEMIDE [Concomitant]
  4. OMEPRAZOLE [Concomitant]
  5. SPIRONOLACTONE [Concomitant]
  6. THIAMINE [Concomitant]
  7. NICOTINAMIDE [Concomitant]
  8. PYRIDOXINE HYDROCHLORIDE [Concomitant]
  9. RIBOFLAVIN TAB [Concomitant]
  10. THIAMINE HYDROCHLORIDE [Concomitant]
  11. VITAMIN B NOS [Concomitant]

REACTIONS (2)
  - ELECTROCARDIOGRAM QT PROLONGED [None]
  - HOSPITALISATION [None]
